FAERS Safety Report 7877666-7 (Version None)
Quarter: 2011Q4

REPORT INFORMATION
  Report Type: 
  Country: None (occurrence: None)
  Receive Date: 20111031
  Receipt Date: 20111031
  Transmission Date: 20120403
  Serious: Yes (Other)
  Sender: FDA-Public Use
  Company Number: None

PATIENT
  Age: 34 Year
  Sex: Female
  Weight: 50.802 kg

DRUGS (2)
  1. CYMBALTA [Suspect]
     Indication: ANXIETY
     Dosage: 30 MG
     Route: 048
     Dates: start: 20110401, end: 20110901
  2. CYMBALTA [Suspect]
     Indication: POSTPARTUM DEPRESSION
     Dosage: 30 MG
     Route: 048
     Dates: start: 20110401, end: 20110901

REACTIONS (14)
  - DIARRHOEA [None]
  - VOMITING [None]
  - DRUG WITHDRAWAL SYNDROME [None]
  - ANGER [None]
  - DISTURBANCE IN ATTENTION [None]
  - HEADACHE [None]
  - HYPERHIDROSIS [None]
  - NAUSEA [None]
  - PRURITUS [None]
  - CRYING [None]
  - VISION BLURRED [None]
  - HOT FLUSH [None]
  - IRRITABILITY [None]
  - ABDOMINAL DISTENSION [None]
